FAERS Safety Report 11639546 (Version 1)
Quarter: 2015Q4

REPORT INFORMATION
  Report Type: Spontaneous
  Country: US (occurrence: None)
  Receive Date: 20151015
  Receipt Date: 20151015
  Transmission Date: 20160304
  Serious: Yes (Other)
  Sender: FDA-Public Use
  Company Number: 54973 AE#1648

PATIENT
  Sex: Male

DRUGS (1)
  1. BABY TEETHING [Suspect]
     Active Substance: ATROPA BELLADONNA\CALCIUM PHOSPHATE\CHAMOMILE\COFFEA ARABICA FRUIT
     Indication: TEETHING

REACTIONS (1)
  - Seizure [None]

NARRATIVE: CASE EVENT DATE: 20150927
